FAERS Safety Report 9547389 (Version 1)
Quarter: 2013Q3

REPORT INFORMATION
  Report Type: Spontaneous
  Country: US (occurrence: None)
  Receive Date: 20130919
  Receipt Date: 20130919
  Transmission Date: 20140515
  Serious: Yes (Hospitalization)
  Sender: FDA-Public Use
  Company Number: 2013P1019168

PATIENT
  Age: 2 Year
  Sex: Male

DRUGS (1)
  1. ADDERALL [Suspect]
     Route: 048
     Dates: start: 20130131, end: 20130131

REACTIONS (1)
  - Accidental exposure to product [None]
